FAERS Safety Report 6016494-4 (Version None)
Quarter: 2008Q4

REPORT INFORMATION
  Report Type: 
  Country: None (occurrence: None)
  Receive Date: 20081222
  Receipt Date: 20081211
  Transmission Date: 20090506
  Serious: Yes (Other)
  Sender: FDA-Public Use
  Company Number: ES-ELI_LILLY_AND_COMPANY-ES200812004594

PATIENT
  Age: 53 Year
  Sex: Female
  Weight: 56 kg

DRUGS (7)
  1. CYMBALTA [Suspect]
     Indication: DEPRESSION
     Dosage: 120 MG, 2/D
     Route: 048
     Dates: start: 20080327, end: 20080727
  2. XENICAL [Concomitant]
     Dosage: UNK, UNKNOWN
     Route: 048
     Dates: start: 20080401
  3. OMEPRAZOLE [Concomitant]
     Dosage: 20 MG, DAILY (1/D)
     Route: 048
  4. LEVOTHROID [Concomitant]
     Dosage: 950 UG, DAILY (1/D)
     Route: 048
  5. TELFAST /01314201/ [Concomitant]
     Dosage: 120 MG, DAILY (1/D)
     Route: 048
  6. VENTOLIN [Concomitant]
     Dosage: 800 UG, DAILY (1/D)
     Route: 055
  7. LYRICA [Concomitant]
     Dosage: 150 MG, DAILY (1/D)
     Route: 048

REACTIONS (1)
  - HEPATITIS ACUTE [None]
